FAERS Safety Report 19806316 (Version 1)
Quarter: 2021Q3

REPORT INFORMATION
  Report Type: Spontaneous
  Country: US (occurrence: US)
  Receive Date: 20210908
  Receipt Date: 20210908
  Transmission Date: 20211014
  Serious: No
  Sender: FDA-Public Use
  Company Number: US-ASTRAZENECA-2021A696945

PATIENT
  Age: 21 Year
  Sex: Female
  Weight: 65.8 kg

DRUGS (1)
  1. BREZTRI AEROSPHERE [Suspect]
     Active Substance: BUDESONIDE\FORMOTEROL\GLYCOPYRRONIUM
     Indication: DYSPNOEA
     Dosage: 160MCG/9MCG/4.8MCG, 2 PUFFS, TWICE DAILY
     Route: 055
     Dates: start: 2021

REACTIONS (4)
  - Intentional device use issue [Unknown]
  - Autoimmune disorder [Unknown]
  - Wrong technique in device usage process [Unknown]
  - Product dose omission issue [Unknown]

NARRATIVE: CASE EVENT DATE: 2021
